FAERS Safety Report 8782002 (Version 2)
Quarter: 2012Q4

REPORT INFORMATION
  Report Type: 
  Country: US (occurrence: US)
  Receive Date: 20120913
  Receipt Date: 20121107
  Transmission Date: 20130627
  Serious: Yes (Hospitalization, Other)
  Sender: FDA-Public Use
  Company Number: US-BAYER-2012-094467

PATIENT
  Age: 25 Year
  Sex: Female
  Weight: 70.3 kg

DRUGS (5)
  1. YASMIN [Suspect]
     Dosage: UNK
     Dates: start: 20020416, end: 20040225
  2. YASMIN [Suspect]
     Dosage: UNK
     Dates: start: 20060816, end: 20070712
  3. FLUOXETINE [Concomitant]
     Indication: DEPRESSION
     Dosage: UNK
     Dates: start: 2000, end: 2001
  4. TOPAMAX [Concomitant]
     Indication: MIGRAINE HEADACHE
     Dosage: UNK
     Dates: start: 2001, end: 2002
  5. NAPROXEN [Concomitant]
     Dosage: UNK
     Dates: start: 2002, end: 2011

REACTIONS (12)
  - Cholecystectomy [None]
  - Haematochezia [None]
  - Pain [None]
  - Muscle spasms [None]
  - Diarrhoea [None]
  - General physical health deterioration [None]
  - Anxiety [None]
  - Injury [None]
  - Pain [None]
  - Anhedonia [None]
  - Emotional distress [None]
  - Pain [None]
